FAERS Safety Report 10029789 (Version 1)
Quarter: 2014Q1

REPORT INFORMATION
  Report Type: Spontaneous
  Country: US (occurrence: None)
  Receive Date: 20140319
  Receipt Date: 20140319
  Transmission Date: 20141002
  Serious: Yes (Other)
  Sender: FDA-Public Use
  Company Number: 2235890

PATIENT
  Age: 48 Year
  Sex: Male
  Weight: 98.1 kg

DRUGS (7)
  1. OXALIPLATIN INJECTION (OXALIPLATIN) [Suspect]
     Indication: GASTRIC CANCER
     Dosage: 1 DAY (NOT OTHERWISE SPECIFIED)
     Route: 042
     Dates: start: 20131210
  2. EMEND [Suspect]
     Indication: NAUSEA
     Route: 042
     Dates: start: 20131210, end: 20131210
  3. ZOFRAN [Suspect]
     Indication: NAUSEA
     Route: 042
     Dates: start: 20131210, end: 20131210
  4. DECADRON [Suspect]
     Route: 042
     Dates: start: 20131210, end: 20131210
  5. PEPCID [Suspect]
     Indication: NAUSEA
     Route: 042
     Dates: start: 20131210, end: 20131210
  6. LEUCOVORIN [Suspect]
     Route: 042
     Dates: start: 20131210, end: 20131210
  7. 5-FU [Suspect]
     Indication: CHEMOTHERAPY
     Route: 042
     Dates: start: 20131210, end: 20131210

REACTIONS (4)
  - Flushing [None]
  - Nausea [None]
  - Nasal congestion [None]
  - Chills [None]
